FAERS Safety Report 6366475-6 (Version None)
Quarter: 2009Q3

REPORT INFORMATION
  Report Type: 
  Country: None (occurrence: None)
  Receive Date: 20090921
  Receipt Date: 20090911
  Transmission Date: 20100115
  Serious: Yes (Disabling)
  Sender: FDA-Public Use
  Company Number: CA-ASTRAZENECA-2009SE09643

PATIENT
  Age: 60 Year
  Sex: Female

DRUGS (7)
  1. ARIMIDEX [Suspect]
     Indication: BREAST CANCER
     Route: 048
     Dates: start: 20080901, end: 20090701
  2. ASCORBIC ACID [Concomitant]
  3. GLUCOSAMINE [Concomitant]
  4. VITAMIN D [Concomitant]
  5. MULTI-VITAMINS [Concomitant]
  6. NEXIUM [Concomitant]
  7. TYKNOL [Concomitant]

REACTIONS (4)
  - ARTHRALGIA [None]
  - GAIT DISTURBANCE [None]
  - HOT FLUSH [None]
  - PAIN IN EXTREMITY [None]
